FAERS Safety Report 19910562 (Version 1)
Quarter: 2021Q4

REPORT INFORMATION
  Report Type: Spontaneous
  Country: US (occurrence: US)
  Receive Date: 20211004
  Receipt Date: 20211004
  Transmission Date: 20220303
  Serious: No
  Sender: FDA-Public Use
  Company Number: US-DRREDDYS-SPO/USA/21/0140201

PATIENT
  Age: 75 Year
  Sex: Female
  Weight: 67.13 kg

DRUGS (3)
  1. CIPROFLOXACIN [Suspect]
     Active Substance: CIPROFLOXACIN
     Indication: Urinary tract infection
     Dates: start: 20210607
  2. CIPROFLOXACIN [Suspect]
     Active Substance: CIPROFLOXACIN
  3. AMOXICILLIN [Suspect]
     Active Substance: AMOXICILLIN
     Indication: Toothache
     Dates: start: 20210607

REACTIONS (3)
  - Mass [Unknown]
  - Rash [Unknown]
  - Pruritus [Unknown]
